FAERS Safety Report 6735947-4 (Version None)
Quarter: 2010Q2

REPORT INFORMATION
  Report Type: 
  Country: None (occurrence: None)
  Receive Date: 20100521
  Receipt Date: 20100514
  Transmission Date: 20101027
  Serious: Yes (Life-Threatening)
  Sender: FDA-Public Use
  Company Number: B0652881A

PATIENT
  Sex: Male

DRUGS (4)
  1. RANITIDINE HCL [Suspect]
     Indication: PROPHYLAXIS
     Dosage: 50MG SINGLE DOSE
     Route: 042
     Dates: start: 20091029, end: 20091029
  2. ERBITUX [Suspect]
     Indication: CHEMOTHERAPY
     Route: 042
     Dates: start: 20091029, end: 20091029
  3. POLARAMINE [Concomitant]
     Indication: PROPHYLAXIS
     Dosage: 5MG SINGLE DOSE
     Route: 042
     Dates: start: 20091029, end: 20091029
  4. RIFATER [Concomitant]
     Indication: PULMONARY TUBERCULOSIS
     Route: 048
     Dates: start: 20091007

REACTIONS (4)
  - ANAPHYLACTIC SHOCK [None]
  - CARDIO-RESPIRATORY ARREST [None]
  - DYSPNOEA [None]
  - PARAESTHESIA [None]
